FAERS Safety Report 9623378 (Version 1)
Quarter: 2013Q4

REPORT INFORMATION
  Report Type: Spontaneous
  Country: FR (occurrence: FR)
  Receive Date: 20131015
  Receipt Date: 20131015
  Transmission Date: 20140711
  Serious: Yes (Hospitalization)
  Sender: FDA-Public Use
  Company Number: FR-ASTRAZENECA-2013SE74517

PATIENT
  Age: 54 Year
  Sex: Female

DRUGS (14)
  1. INEXIUM [Suspect]
     Indication: GASTRIC ULCER
     Route: 048
     Dates: start: 20130805, end: 20130814
  2. INEXIUM [Suspect]
     Indication: GASTRIC ULCER
     Route: 048
     Dates: start: 20130814
  3. EFFEXOR [Suspect]
     Indication: DEPRESSION
     Route: 048
     Dates: start: 20130725, end: 20130813
  4. BACTRIM [Suspect]
     Indication: PROPHYLAXIS
     Dosage: 400 MG/800 MG, 1 DF EVERY DAY
     Route: 048
     Dates: start: 20130725, end: 20130814
  5. TARDYFERON B9 [Suspect]
     Indication: IRON DEFICIENCY ANAEMIA
     Route: 048
     Dates: start: 20130805
  6. CORTANCYL [Concomitant]
     Indication: SYSTEMIC LUPUS ERYTHEMATOSUS
     Dates: end: 201307
  7. CORTANCYL [Concomitant]
     Indication: SYSTEMIC LUPUS ERYTHEMATOSUS
     Dates: start: 201307
  8. PLAQUENIL [Concomitant]
     Indication: SYSTEMIC LUPUS ERYTHEMATOSUS
  9. COLCHICINE OPOCALCIUM [Concomitant]
     Indication: SYSTEMIC SCLEROSIS
  10. MOTILIUM [Concomitant]
     Indication: BARRETT^S OESOPHAGUS
  11. PIASCLEDINE [Concomitant]
     Dates: end: 20130814
  12. DIFFU-K [Concomitant]
     Indication: HYPOKALAEMIA
  13. CALCIUM D3 [Concomitant]
     Indication: HYPOVITAMINOSIS
     Dosage: 500 MG/400 IU 1 DF TWO TIMES A DAY
  14. CALCIUM D3 [Concomitant]
     Indication: CALCIUM DEFICIENCY
     Dosage: 500 MG/400 IU 1 DF TWO TIMES A DAY

REACTIONS (6)
  - Histiocytosis haematophagic [Recovering/Resolving]
  - Hepatocellular injury [Recovering/Resolving]
  - Cholestasis [Recovering/Resolving]
  - Pancytopenia [Recovering/Resolving]
  - Hyponatraemia [Recovering/Resolving]
  - Lipase increased [Recovering/Resolving]
